FAERS Safety Report 21695043 (Version 1)
Quarter: 2022Q4

REPORT INFORMATION
  Report Type: Report from Study
  Country: US (occurrence: US)
  Receive Date: 20221207
  Receipt Date: 20221207
  Transmission Date: 20230113
  Serious: No
  Sender: FDA-Public Use
  Company Number: US-ABBVIE-4183498

PATIENT
  Sex: Male

DRUGS (1)
  1. RINVOQ [Suspect]
     Active Substance: UPADACITINIB
     Indication: Arthritis
     Dosage: 15MG?EXTENDED RELEASE
     Route: 048
     Dates: start: 20221008

REACTIONS (3)
  - Fatigue [Unknown]
  - Off label use [Unknown]
  - Muscle fatigue [Unknown]
